FAERS Safety Report 5157527-7 (Version None)
Quarter: 2006Q4

REPORT INFORMATION
  Report Type: 
  Country: None (occurrence: None)
  Receive Date: 20061127
  Receipt Date: 20061108
  Transmission Date: 20070319
  Serious: Yes (Other)
  Sender: FDA-Public Use
  Company Number: JP-JPN-A200604792

PATIENT
  Age: 27 Year
  Sex: Female

DRUGS (11)
  1. PAXIL [Suspect]
     Indication: DEPRESSION
     Dosage: 20MG PER DAY
     Route: 048
  2. FLUMEZIN [Suspect]
     Indication: ANXIETY
     Dosage: .5MG TWICE PER DAY
     Route: 048
     Dates: start: 20060520
  3. SOLANAX [Suspect]
     Indication: ANXIETY
     Dosage: .8MG TWICE PER DAY
     Route: 048
     Dates: start: 20060520
  4. DEPAKENE [Suspect]
     Indication: DYSTHYMIC DISORDER
     Dosage: 200MG TWICE PER DAY
     Route: 048
     Dates: start: 20060520
  5. RISPERDAL [Suspect]
     Indication: INSOMNIA
     Dosage: 2MG PER DAY
     Route: 048
     Dates: start: 20060520
  6. ROHYPNOL [Suspect]
     Indication: INSOMNIA
     Dosage: 2MG PER DAY
     Route: 048
     Dates: start: 20060520
  7. RESLIN [Suspect]
     Route: 048
  8. LEXOTAN [Suspect]
     Indication: ANXIETY
     Dosage: 5MG PER DAY
     Route: 048
     Dates: start: 20060520
  9. LENDORMIN [Suspect]
     Route: 048
  10. EURODIN [Suspect]
     Indication: INSOMNIA
     Dosage: .5MG PER DAY
     Route: 048
     Dates: start: 20060520
  11. UNKNOWN MEDICATION [Suspect]
     Indication: ANXIETY
     Dosage: 2MG PER DAY
     Route: 048
     Dates: start: 20060520

REACTIONS (4)
  - DRUG INTERACTION [None]
  - ELECTROENCEPHALOGRAM ABNORMAL [None]
  - LOSS OF CONSCIOUSNESS [None]
  - SOMNOLENCE [None]
